FAERS Safety Report 7318346-6 (Version None)
Quarter: 2011Q1

REPORT INFORMATION
  Report Type: 
  Country: None (occurrence: None)
  Receive Date: 20110218
  Receipt Date: 20110218
  Transmission Date: 20110831
  Serious: Yes (Hospitalization)
  Sender: FDA-Public Use
  Company Number: None

PATIENT
  Age: 86 Year
  Sex: Male
  Weight: 86.1834 kg

DRUGS (11)
  1. ALTACE [Concomitant]
  2. REGULAR INSULIN [Concomitant]
  3. NPH INSULIN [Concomitant]
  4. AMLODIPINE [Concomitant]
  5. ASPIRIN [Suspect]
     Indication: CORONARY ARTERY DISEASE
     Dosage: 81MG DAILY PO CHRONIC
     Route: 048
  6. METOPROLOL [Concomitant]
  7. PRAVASTATIN [Concomitant]
  8. FORADOL [Concomitant]
  9. PLAVIX [Suspect]
     Indication: CORONARY ARTERY DISEASE
     Dosage: RECENT
  10. PLAVIX [Suspect]
     Indication: STENT PLACEMENT
     Dosage: RECENT
  11. ALBUTEROL [Concomitant]

REACTIONS (1)
  - HAEMOPTYSIS [None]
